FAERS Safety Report 18156631 (Version 1)
Quarter: 2020Q3

REPORT INFORMATION
  Report Type: Spontaneous
  Country: DE (occurrence: DE)
  Receive Date: 20200817
  Receipt Date: 20200817
  Transmission Date: 20201103
  Serious: Yes (Other)
  Sender: FDA-Public Use
  Company Number: NVSC2020DE222753

PATIENT
  Age: 58 Year
  Sex: Female

DRUGS (4)
  1. PARACETAMOL [Interacting]
     Active Substance: ACETAMINOPHEN
     Dosage: 2 DF, QD
     Route: 065
     Dates: start: 20200129
  2. PARACETAMOL [Interacting]
     Active Substance: ACETAMINOPHEN
     Indication: PAIN
     Dosage: 2 DF, QD
     Route: 065
  3. VOLTAREN RESINAT [Interacting]
     Active Substance: DICLOFENAC
     Dosage: 1 DF, QD
     Route: 065
     Dates: start: 20200130
  4. VOLTAREN RESINAT [Suspect]
     Active Substance: DICLOFENAC
     Indication: PAIN
     Dosage: 1 DF, QD
     Route: 065

REACTIONS (3)
  - Drug interaction [Unknown]
  - Sinusitis bacterial [Recovering/Resolving]
  - Breath odour [Recovering/Resolving]

NARRATIVE: CASE EVENT DATE: 20200202
